FAERS Safety Report 15429419 (Version 2)
Quarter: 2018Q4

REPORT INFORMATION
  Report Type: Spontaneous
  Country: RS (occurrence: RS)
  Receive Date: 20180926
  Receipt Date: 20181012
  Transmission Date: 20190204
  Serious: Yes (Death, Other)
  Sender: FDA-Public Use
  Company Number: RS-ROCHE-2189009

PATIENT
  Age: 74 Year
  Sex: Male

DRUGS (1)
  1. ACTILYSE [Suspect]
     Active Substance: ALTEPLASE
     Indication: CEREBROVASCULAR ACCIDENT
     Route: 042
     Dates: start: 20180420

REACTIONS (5)
  - Drug ineffective [Fatal]
  - Atrial flutter [Fatal]
  - Atrial fibrillation [Fatal]
  - Asphyxia [Unknown]
  - Product quality issue [Unknown]

NARRATIVE: CASE EVENT DATE: 20180420
